FAERS Safety Report 14514439 (Version 1)
Quarter: 2018Q1

REPORT INFORMATION
  Report Type: Spontaneous
  Country: US (occurrence: US)
  Receive Date: 20180209
  Receipt Date: 20180209
  Transmission Date: 20180509
  Serious: Yes (Hospitalization)
  Sender: FDA-Public Use
  Company Number: US-CHIESI USA INC.-US-2018CHI000032

PATIENT

DRUGS (1)
  1. BETHKIS [Suspect]
     Active Substance: TOBRAMYCIN
     Indication: CYSTIC FIBROSIS LUNG
     Dosage: 300 MG, BID
     Route: 055
     Dates: start: 20171017

REACTIONS (4)
  - Ill-defined disorder [Unknown]
  - Nausea [Unknown]
  - Wheezing [Unknown]
  - Headache [Unknown]

NARRATIVE: CASE EVENT DATE: 20180129
